FAERS Safety Report 4840479-4 (Version None)
Quarter: 2005Q4

REPORT INFORMATION
  Report Type: 
  Country: None (occurrence: None)
  Receive Date: 20051130
  Receipt Date: 20050722
  Transmission Date: 20060501
  Serious: Yes (Life-Threatening, Hospitalization)
  Sender: FDA-Public Use
  Company Number: US-BRISTOL-MYERS SQUIBB COMPANY-13059175

PATIENT
  Age: 59 Year
  Sex: Male

DRUGS (2)
  1. ERBITUX [Suspect]
     Indication: NON-SMALL CELL LUNG CANCER
     Dosage: ADMINISTERED OVER 1 HOUR FROM 3:10 P.M. TO 4:10 P.M.
     Route: 042
     Dates: start: 20050711, end: 20050711
  2. BENADRYL [Concomitant]
     Indication: PREMEDICATION
     Dosage: ADMINISTERED FROM 2:40 P.M. TO 3:10 P.M.
     Dates: start: 20050711, end: 20050711

REACTIONS (1)
  - INFUSION RELATED REACTION [None]
